FAERS Safety Report 8458431-9 (Version None)
Quarter: 2012Q2

REPORT INFORMATION
  Report Type: 
  Country: None (occurrence: None)
  Receive Date: 20120622
  Receipt Date: 20120613
  Transmission Date: 20120825
  Serious: Yes (Hospitalization, Other)
  Sender: FDA-Public Use
  Company Number: CA-BRISTOL-MYERS SQUIBB COMPANY-15178023

PATIENT
  Age: 50 Year
  Sex: Female

DRUGS (10)
  1. CELEBREX [Concomitant]
  2. SINGULAIR [Concomitant]
  3. PREDNISONE TAB [Concomitant]
  4. ACETAMINOPHEN [Concomitant]
  5. MICARDIS [Concomitant]
  6. MAXALT [Concomitant]
  7. ORENCIA [Suspect]
     Indication: RHEUMATOID ARTHRITIS
     Dosage: LAST DOSE:13DEC10,03OCT11,23MAY12;1L66305;SEP14,NO OF INF:42
     Route: 042
     Dates: start: 20090402
  8. ENBREL [Concomitant]
  9. METHOTREXATE [Concomitant]
  10. NEXIUM [Concomitant]

REACTIONS (3)
  - ASTHMA [None]
  - BRONCHITIS [None]
  - CHEST PAIN [None]
